FAERS Safety Report 18199018 (Version 1)
Quarter: 2020Q3

REPORT INFORMATION
  Report Type: Spontaneous
  Country: GB (occurrence: GB)
  Receive Date: 20200826
  Receipt Date: 20200826
  Transmission Date: 20201103
  Serious: Yes (Other)
  Sender: FDA-Public Use
  Company Number: GB-TEVA-2020-GB-1819744

PATIENT
  Age: 50 Year
  Sex: Female
  Weight: 58 kg

DRUGS (17)
  1. AMITRIPTYLINE HYDROCHLORIDE. [Concomitant]
     Active Substance: AMITRIPTYLINE HYDROCHLORIDE
     Dosage: IN THE MORNING.
     Dates: start: 20200407
  2. TRAMADOL. [Concomitant]
     Active Substance: TRAMADOL
     Dosage: 4 DOSAGE FORMS DAILY;
     Dates: start: 20200407
  3. DUORESP SPIROMAX [Concomitant]
     Active Substance: BUDESONIDE\FORMOTEROL
     Dosage: 4 DOSAGE FORMS
     Dates: start: 20200407
  4. ZOPICLONE [Concomitant]
     Active Substance: ZOPICLONE
     Dosage: 1 DOSAGE FORMS DAILY; AT NIGHT.
     Dates: start: 20200504, end: 20200518
  5. DOXYCYCLINE. [Concomitant]
     Active Substance: DOXYCYCLINE
     Dosage: 2 DOSAGE FORM
     Dates: start: 20200706, end: 20200713
  6. SALBUTAMOL [Concomitant]
     Active Substance: ALBUTEROL
     Dosage: ONE OR TWO PUFFS TO BE INHALED UP TO FOUR TIMES...
     Route: 055
     Dates: start: 20200407
  7. INCRUSE ELLIPTA [Concomitant]
     Active Substance: UMECLIDINIUM BROMIDE
     Dosage: 1 DOSAGE FORM
     Route: 055
     Dates: start: 20200316
  8. MIRTAZAPINE. [Concomitant]
     Active Substance: MIRTAZAPINE
     Dosage: 1 DOSAGE FORMS DAILY; AT NIGHT.
     Dates: start: 20200407
  9. TIBOLONE [Concomitant]
     Active Substance: TIBOLONE
     Dosage: 1 DOSAGE FORMS DAILY; EACH MORNING.
     Dates: start: 20200407
  10. RAMIPRIL. [Concomitant]
     Active Substance: RAMIPRIL
     Dosage: 1 DOSAGE FORM
     Dates: start: 20200407
  11. GABAPENTIN. [Suspect]
     Active Substance: GABAPENTIN
     Dosage: INCREASING GRADUALLY, 200MG
     Dates: start: 20200724
  12. TICAGRELOR. [Concomitant]
     Active Substance: TICAGRELOR
     Dosage: STOP NOVEMBER 2020, 2 DOSAGE FORMS
     Dates: start: 20200407
  13. EPISENTA PROLONGED RELEASE [Concomitant]
     Active Substance: VALPROATE SODIUM
     Dosage: 6 DOSAGE FORM
     Dates: start: 20200120
  14. ACETYLSALICYLIC ACID [Concomitant]
     Active Substance: ASPIRIN
     Dosage: 1 DOSAGE FORM
     Dates: start: 20200407
  15. CLONAZEPAM. [Concomitant]
     Active Substance: CLONAZEPAM
     Dosage: 1 DOSAGE FORMS DAILY; AT NIGHT.
     Dates: start: 20200407
  16. BISOPROLOL [Concomitant]
     Active Substance: BISOPROLOL
     Dosage: 1 DOSAGE FORM
     Dates: start: 20200407
  17. DIHYDROCODEINE [Concomitant]
     Active Substance: DIHYDROCODEINE
     Dosage: TAKE 1 OR 2 EVERY 12 HOURS.
     Dates: start: 20200504, end: 20200601

REACTIONS (3)
  - Blister [Unknown]
  - Suicidal ideation [Recovering/Resolving]
  - Depressed mood [Recovering/Resolving]

NARRATIVE: CASE EVENT DATE: 20200727
